FAERS Safety Report 8103260-9 (Version None)
Quarter: 2012Q1

REPORT INFORMATION
  Report Type: 
  Country: None (occurrence: None)
  Receive Date: 20120127
  Receipt Date: 20120110
  Transmission Date: 20120608
  Serious: Yes (Death, Other)
  Sender: FDA-Public Use
  Company Number: FK201200107

PATIENT
  Age: 38 Year
  Sex: Female

DRUGS (4)
  1. OXALIPLATIN [Suspect]
     Indication: OESOPHAGEAL CARCINOMA
  2. EPIRUBICIN [Suspect]
     Indication: OESOPHAGEAL CARCINOMA
  3. CISPLATIN [Suspect]
     Indication: OESOPHAGEAL CARCINOMA
  4. FLUOROURACIL [Suspect]
     Indication: OESOPHAGEAL CARCINOMA

REACTIONS (15)
  - GRAND MAL CONVULSION [None]
  - HAEMATEMESIS [None]
  - GASTROINTESTINAL INJURY [None]
  - GASTROINTESTINAL TOXICITY [None]
  - PYREXIA [None]
  - OESOPHAGEAL FISTULA [None]
  - HEART INJURY [None]
  - NEUROLOGICAL DECOMPENSATION [None]
  - CEREBRAL ARTERY EMBOLISM [None]
  - BRAIN OEDEMA [None]
  - CONFUSIONAL STATE [None]
  - NAUSEA [None]
  - VOMITING [None]
  - INTRACRANIAL PRESSURE INCREASED [None]
  - FAT EMBOLISM [None]
